FAERS Safety Report 16643051 (Version 6)
Quarter: 2019Q4

REPORT INFORMATION
  Report Type: Spontaneous
  Country: CA (occurrence: CA)
  Receive Date: 20190729
  Receipt Date: 20191120
  Transmission Date: 20200122
  Serious: Yes (Disabling, Other)
  Sender: FDA-Public Use
  Company Number: CA-OTSUKA-2018_011894

PATIENT
  Age: 38 Year
  Sex: Male
  Weight: 90.7 kg

DRUGS (17)
  1. ATIVAN [Concomitant]
     Active Substance: LORAZEPAM
     Indication: PRODUCT USED FOR UNKNOWN INDICATION
     Dosage: 1 MG, DAILY PRN
     Route: 065
  2. PROCYCLIDINE [Concomitant]
     Active Substance: PROCYCLIDINE
     Indication: PRODUCT USED FOR UNKNOWN INDICATION
     Dosage: 5 MG, QD
     Route: 065
  3. CLOPIXOL [Suspect]
     Active Substance: ZUCLOPENTHIXOL
     Indication: SCHIZOPHRENIA
     Dosage: UNK
     Route: 030
     Dates: start: 201904, end: 2019
  4. ZYPREXA [Concomitant]
     Active Substance: OLANZAPINE
     Dosage: 15 MG, UNK
     Route: 065
  5. ZYPREXA [Concomitant]
     Active Substance: OLANZAPINE
     Dosage: 2.5 MG, UNK
     Route: 065
  6. ZYPREXA [Concomitant]
     Active Substance: OLANZAPINE
     Dosage: 10 MG, UNK
     Route: 065
     Dates: start: 2000
  7. ZYPREXA [Concomitant]
     Active Substance: OLANZAPINE
     Dosage: 7.5 MG, HS PRN
     Route: 065
  8. ABILIFY MAINTENA [Suspect]
     Active Substance: ARIPIPRAZOLE
     Indication: SCHIZOPHRENIA
     Dosage: 300 MG, UNK
     Route: 065
     Dates: start: 2016
  9. INVEGA [Concomitant]
     Active Substance: PALIPERIDONE
     Indication: PRODUCT USED FOR UNKNOWN INDICATION
     Dosage: UNK
     Route: 065
  10. ABILIFY MAINTENA [Suspect]
     Active Substance: ARIPIPRAZOLE
     Dosage: 300 MG, UNK
     Route: 065
     Dates: start: 2018, end: 2018
  11. ABILIFY MAINTENA [Suspect]
     Active Substance: ARIPIPRAZOLE
     Dosage: 400 MG, UNK
     Route: 065
     Dates: end: 20190410
  12. ABILIFY MAINTENA [Suspect]
     Active Substance: ARIPIPRAZOLE
     Dosage: 200 MG, UNK
     Route: 065
     Dates: start: 20181219
  13. ABILIFY [Suspect]
     Active Substance: ARIPIPRAZOLE
     Indication: SCHIZOPHRENIA
     Dosage: UNK
     Route: 065
     Dates: start: 2018
  14. ABILIFY MAINTENA [Suspect]
     Active Substance: ARIPIPRAZOLE
     Dosage: 400 MG, Q28D
     Route: 065
     Dates: start: 20180322
  15. CLOPIXOL [Suspect]
     Active Substance: ZUCLOPENTHIXOL
     Dosage: 200 MG, EVERY 3 WEEKS
     Route: 030
     Dates: start: 201905
  16. ZYPREXA [Concomitant]
     Active Substance: OLANZAPINE
     Indication: DIABETES MELLITUS MANAGEMENT
     Dosage: 5 MG, QD
     Route: 065
  17. COGENTIN [Concomitant]
     Active Substance: BENZTROPINE MESYLATE
     Indication: PARKINSON^S DISEASE
     Dosage: UNK
     Route: 065

REACTIONS (46)
  - Gingival disorder [Not Recovered/Not Resolved]
  - Impaired quality of life [Unknown]
  - Mastication disorder [Not Recovered/Not Resolved]
  - Libido increased [Not Recovered/Not Resolved]
  - Anxiety [Not Recovered/Not Resolved]
  - Insomnia [Not Recovered/Not Resolved]
  - Prescribed underdose [Unknown]
  - Poverty [Unknown]
  - Intentional product misuse [Unknown]
  - Product dose omission [Unknown]
  - Economic problem [Unknown]
  - Abnormal behaviour [Not Recovered/Not Resolved]
  - Tendon disorder [Unknown]
  - Tongue biting [Not Recovered/Not Resolved]
  - Loss of employment [Unknown]
  - Drug ineffective [Unknown]
  - Tendonitis [Recovering/Resolving]
  - Trismus [Not Recovered/Not Resolved]
  - Aggression [Not Recovered/Not Resolved]
  - Incorrect product administration duration [Unknown]
  - Bruxism [Recovering/Resolving]
  - Drug intolerance [Unknown]
  - Mental disorder [Unknown]
  - Anger [Not Recovered/Not Resolved]
  - Disturbance in attention [Not Recovered/Not Resolved]
  - Hypoglycaemia [Unknown]
  - Malaise [Unknown]
  - Gambling disorder [Unknown]
  - Depression [Not Recovered/Not Resolved]
  - Decreased appetite [Not Recovered/Not Resolved]
  - Therapy cessation [Unknown]
  - Hypertonia [Recovering/Resolving]
  - Homosexuality [Not Recovered/Not Resolved]
  - Tooth injury [Unknown]
  - Legal problem [Unknown]
  - Product quality issue [Unknown]
  - Malpositioned teeth [Not Recovered/Not Resolved]
  - Toothache [Recovering/Resolving]
  - Cardiovascular disorder [Not Recovered/Not Resolved]
  - Hallucination, auditory [Recovering/Resolving]
  - Therapy cessation [Unknown]
  - Depressed mood [Unknown]
  - Eating disorder [Unknown]
  - Pain in jaw [Not Recovered/Not Resolved]
  - Psychiatric symptom [Not Recovered/Not Resolved]
  - Refusal of treatment by patient [Unknown]

NARRATIVE: CASE EVENT DATE: 2016
